FAERS Safety Report 8347687-9 (Version None)
Quarter: 2012Q2

REPORT INFORMATION
  Report Type: 
  Country: None (occurrence: None)
  Receive Date: 20120509
  Receipt Date: 20120504
  Transmission Date: 20120825
  Serious: Yes (Hospitalization)
  Sender: FDA-Public Use
  Company Number: DE-BAYER-2012-043611

PATIENT
  Age: 34 Year
  Sex: Female
  Weight: 86.168 kg

DRUGS (2)
  1. AVELOX [Suspect]
     Indication: BRONCHITIS BACTERIAL
     Dosage: 400 MG, QD
     Dates: start: 20120416, end: 20120417
  2. LEVOTHYROXINE SODIUM [Concomitant]
     Indication: HYPOTHYROIDISM
     Dosage: DAILY DOSE 75 ?G

REACTIONS (8)
  - TENSION [None]
  - PALPITATIONS [None]
  - ANXIETY [None]
  - TREMOR [None]
  - DELUSION [None]
  - RESTLESSNESS [None]
  - FEAR [None]
  - PANIC REACTION [None]
